FAERS Safety Report 6877600-2 (Version None)
Quarter: 2010Q3

REPORT INFORMATION
  Report Type: 
  Country: None (occurrence: None)
  Receive Date: 20100727
  Receipt Date: 20100305
  Transmission Date: 20110219
  Serious: No
  Sender: FDA-Public Use
  Company Number: US-ABBOTT-10P-163-0631835-00

PATIENT
  Sex: Female
  Weight: 54.026 kg

DRUGS (3)
  1. SYNTHROID [Suspect]
     Indication: THYROIDECTOMY
     Route: 048
     Dates: start: 20090101
  2. ATIVAN [Concomitant]
     Indication: ANXIETY
     Dosage: HALF OF A TABLET AS NEEDED
  3. ATIVAN [Concomitant]
     Indication: PANIC ATTACK

REACTIONS (4)
  - BONE DENSITY ABNORMAL [None]
  - EMOTIONAL DISTRESS [None]
  - FAECES HARD [None]
  - FREQUENT BOWEL MOVEMENTS [None]
